FAERS Safety Report 19555685 (Version 2)
Quarter: 2021Q3

REPORT INFORMATION
  Report Type: Spontaneous
  Country: US (occurrence: US)
  Receive Date: 20210715
  Receipt Date: 20210722
  Transmission Date: 20211014
  Serious: No
  Sender: FDA-Public Use
  Company Number: US-UNITED THERAPEUTICS-UNT-2021-013203

PATIENT
  Age: 58 Year
  Sex: Female
  Weight: 122 kg

DRUGS (4)
  1. XARELTO [Concomitant]
     Active Substance: RIVAROXABAN
     Indication: PRODUCT USED FOR UNKNOWN INDICATION
     Dosage: UNK
     Route: 065
  2. SILDENAFIL. [Concomitant]
     Active Substance: SILDENAFIL
     Indication: PRODUCT USED FOR UNKNOWN INDICATION
     Dosage: UNK
     Route: 065
  3. REMODULIN [Suspect]
     Active Substance: TREPROSTINIL
     Indication: PULMONARY ARTERIAL HYPERTENSION
     Dosage: UNK, CONTINUING
     Route: 041
     Dates: start: 20140730
  4. REMODULIN [Suspect]
     Active Substance: TREPROSTINIL
     Dosage: 0.089 ?G/KG, CONTINUING
     Route: 041

REACTIONS (3)
  - Device occlusion [Unknown]
  - Catheter site extravasation [Unknown]
  - Device infusion issue [Unknown]

NARRATIVE: CASE EVENT DATE: 202106
